FAERS Safety Report 5519260-9 (Version None)
Quarter: 2007Q4

REPORT INFORMATION
  Report Type: 
  Country: None (occurrence: None)
  Receive Date: 20071116
  Receipt Date: 20071112
  Transmission Date: 20080405
  Serious: Yes (Death)
  Sender: FDA-Public Use
  Company Number: BR-BRISTOL-MYERS SQUIBB COMPANY-13979950

PATIENT
  Age: 26 Year
  Sex: Male

DRUGS (2)
  1. AMPHOTERICIN B [Suspect]
     Indication: CRYPTOCOCCOSIS
  2. 5-FLUOROCYTOSINE [Suspect]
     Indication: CRYPTOCOCCOSIS

REACTIONS (1)
  - DEATH [None]
